FAERS Safety Report 19518614 (Version 1)
Quarter: 2021Q3

REPORT INFORMATION
  Report Type: Spontaneous
  Country: US (occurrence: US)
  Receive Date: 20210712
  Receipt Date: 20210712
  Transmission Date: 20211014
  Serious: Yes (Hospitalization, Other)
  Sender: FDA-Public Use
  Company Number: US-CIPLA LTD.-2021US04914

PATIENT

DRUGS (2)
  1. METOPROLOL. [Suspect]
     Active Substance: METOPROLOL
     Indication: ATRIAL FIBRILLATION
     Dosage: 50 MILLIGRAM, BID
     Route: 065
  2. METOPROLOL. [Suspect]
     Active Substance: METOPROLOL
     Dosage: 25 MILLIGRAM, BID
     Route: 065

REACTIONS (10)
  - Atrial fibrillation [Recovered/Resolved]
  - Loss of personal independence in daily activities [Unknown]
  - Dizziness postural [Unknown]
  - Dyspnoea [Unknown]
  - Oedema peripheral [Unknown]
  - Jugular vein distension [Unknown]
  - Gastrointestinal haemorrhage [Unknown]
  - Condition aggravated [Unknown]
  - Cardiac failure [Unknown]
  - Fatigue [Unknown]
